FAERS Safety Report 10842217 (Version 1)
Quarter: 2015Q1

REPORT INFORMATION
  Report Type: Report from Study
  Country: SE (occurrence: SE)
  Receive Date: 20150220
  Receipt Date: 20150220
  Transmission Date: 20150721
  Serious: Yes (Hospitalization)
  Sender: FDA-Public Use
  Company Number: SE-ACTAVIS-2015-03156

PATIENT
  Age: 75 Year
  Sex: Female
  Weight: 52 kg

DRUGS (16)
  1. PARACETAMOL [Concomitant]
     Active Substance: ACETAMINOPHEN
     Indication: ARTHRALGIA
     Dosage: UNK UNK, UNKNOWN
     Route: 065
     Dates: start: 2012
  2. POSTAFEN                           /00072802/ [Concomitant]
     Indication: ANTIEMETIC SUPPORTIVE CARE
     Dosage: UNK UNK, UNKNOWN
     Route: 065
     Dates: start: 2012
  3. LORAZEPAM. [Concomitant]
     Active Substance: LORAZEPAM
     Indication: ANTIEMETIC SUPPORTIVE CARE
     Dosage: UNK, UNKNOWN
     Route: 065
     Dates: start: 20130614
  4. SULFAMETOXAZOL MED TRIMETOPRIM [Concomitant]
     Indication: INFECTION PROPHYLAXIS
     Dosage: UNK UNK, UNKNOWN
     Route: 065
     Dates: start: 20120904
  5. OMEPRAZOLE. [Concomitant]
     Active Substance: OMEPRAZOLE
     Indication: PROPHYLAXIS
     Dosage: UNK UNK, UNKNOWN
     Route: 065
     Dates: start: 20120827
  6. FILGRASTIM [Suspect]
     Active Substance: FILGRASTIM
     Indication: ACUTE LYMPHOCYTIC LEUKAEMIA
     Dosage: 30 MILLION IU/0.5 ML, UNSPECIFIED FREQUENCY
     Route: 058
     Dates: start: 20130625
  7. MORPHINE [Concomitant]
     Active Substance: MORPHINE
     Indication: ARTHRALGIA
     Dosage: UNK, UNKNOWN
     Route: 065
     Dates: start: 2012
  8. ROPINIROLE. [Concomitant]
     Active Substance: ROPINIROLE
     Indication: PARKINSON^S DISEASE
     Dosage: UNK, UNKNOWN
     Route: 065
     Dates: start: 20111001
  9. FUROSEMIDE. [Concomitant]
     Active Substance: FUROSEMIDE
     Indication: DIURETIC THERAPY
     Dosage: UNK, UNKNOWN
     Route: 065
     Dates: start: 20120830
  10. FLUDARABINE PHOSPHATE (ATLLC) [Suspect]
     Active Substance: FLUDARABINE PHOSPHATE
     Indication: ACUTE LYMPHOCYTIC LEUKAEMIA
     Dosage: 40 MG, CYCLIC (DAYS 2-6, OF A 4 WEEK CYCLE)
     Route: 042
     Dates: start: 20130612
  11. CYTARABINE (UNKNOWN) [Suspect]
     Active Substance: CYTARABINE
     Indication: ACUTE LYMPHOCYTIC LEUKAEMIA
     Dosage: 2.8 G CYCLIC, (DAYS 1-6, OF A 4 WEEK CYCLE)
     Route: 042
     Dates: start: 20130611
  12. OXASCAND [Concomitant]
     Active Substance: OXAZEPAM
     Indication: SEDATIVE THERAPY
     Dosage: UNK, UNKNOWN
     Route: 065
     Dates: start: 2013
  13. PREDNISOLONE. [Concomitant]
     Active Substance: PREDNISOLONE
     Indication: PRODUCT USED FOR UNKNOWN INDICATION
     Dosage: UNK, UNKNOWN
     Route: 047
     Dates: start: 2012
  14. VALACICLOVIR [Concomitant]
     Active Substance: VALACYCLOVIR HYDROCHLORIDE
     Indication: ANTIVIRAL PROPHYLAXIS
     Dosage: UNK UNK, UNKNOWN
     Route: 065
     Dates: start: 20120828
  15. FLUCONAZOLE. [Concomitant]
     Active Substance: FLUCONAZOLE
     Indication: PROPHYLAXIS
     Dosage: UNK UNK, UNKNOWN
     Route: 065
     Dates: start: 20120827
  16. MOVICOL [Concomitant]
     Active Substance: POLYETHYLENE GLYCOL 3350\POTASSIUM CHLORIDE\SODIUM BICARBONATE\SODIUM CHLORIDE
     Indication: CONSTIPATION PROPHYLAXIS
     Dosage: UNK UNK, UNKNOWN
     Route: 065
     Dates: start: 20120824

REACTIONS (3)
  - Neutropenic sepsis [Recovered/Resolved]
  - Thrombocytopenia [None]
  - Leukopenia [None]

NARRATIVE: CASE EVENT DATE: 20130624
